FAERS Safety Report 10274441 (Version 1)
Quarter: 2014Q3

REPORT INFORMATION
  Report Type: Spontaneous
  Country: US (occurrence: US)
  Receive Date: 20140702
  Receipt Date: 20140702
  Transmission Date: 20150326
  Serious: No
  Sender: FDA-Public Use
  Company Number: US-PFIZER INC-2014177783

PATIENT
  Age: 72 Year
  Sex: Female
  Weight: 81.63 kg

DRUGS (2)
  1. ATORVASTATIN CALCIUM. [Suspect]
     Active Substance: ATORVASTATIN CALCIUM
     Indication: C-REACTIVE PROTEIN INCREASED
     Dosage: 10 MG, DAILY
  2. HUMIRA [Concomitant]
     Active Substance: ADALIMUMAB
     Indication: RHEUMATOID ARTHRITIS
     Dosage: UNK, 2X/MONTH
     Dates: start: 20130626

REACTIONS (1)
  - Head discomfort [Unknown]
